FAERS Safety Report 20364246 (Version 2)
Quarter: 2022Q1

REPORT INFORMATION
  Report Type: Report from Study
  Country: US (occurrence: US)
  Receive Date: 20220121
  Receipt Date: 20220203
  Transmission Date: 20220423
  Serious: Yes (Hospitalization, Other)
  Sender: FDA-Public Use
  Company Number: US-JAZZ-2022-US-000261

PATIENT
  Sex: Male

DRUGS (33)
  1. XYREM [Suspect]
     Active Substance: SODIUM OXYBATE
     Indication: Narcolepsy
     Dosage: 2.25 GRAM, BID
     Route: 048
     Dates: start: 200702, end: 200704
  2. XYREM [Suspect]
     Active Substance: SODIUM OXYBATE
     Indication: Cataplexy
     Dosage: DOSE ADJUSTMENTS
     Route: 048
     Dates: start: 200706, end: 200811
  3. XYREM [Suspect]
     Active Substance: SODIUM OXYBATE
     Indication: Somnolence
     Dosage: 4.5 GRAM, BID
     Route: 048
     Dates: start: 200812, end: 202101
  4. XYWAV [Suspect]
     Active Substance: CALCIUM OXYBATE\MAGNESIUM OXYBATE\POTASSIUM OXYBATE\SODIUM OXYBATE
     Indication: Narcolepsy
     Dosage: 4.5 GRAM
     Route: 048
     Dates: start: 202101
  5. XYWAV [Suspect]
     Active Substance: CALCIUM OXYBATE\MAGNESIUM OXYBATE\POTASSIUM OXYBATE\SODIUM OXYBATE
     Indication: Cataplexy
  6. XYWAV [Suspect]
     Active Substance: CALCIUM OXYBATE\MAGNESIUM OXYBATE\POTASSIUM OXYBATE\SODIUM OXYBATE
     Indication: Somnolence
  7. DOCUSATE SODIUM [Concomitant]
     Active Substance: DOCUSATE SODIUM
     Dosage: 0000
     Dates: start: 20110101
  8. DRONABINOL [Concomitant]
     Active Substance: DRONABINOL
     Dosage: 0000
     Dates: start: 20151201
  9. ASCORBIC ACID [Concomitant]
     Active Substance: ASCORBIC ACID
     Dosage: 0000
     Dates: start: 20160821
  10. ASPIRIN [Concomitant]
     Active Substance: ASPIRIN
     Dosage: 0000
     Dates: start: 20160821
  11. PROMETHAZINE [Concomitant]
     Active Substance: PROMETHAZINE HYDROCHLORIDE
     Dosage: 0000
     Dates: start: 20161115
  12. ALLOPURINOL [Concomitant]
     Active Substance: ALLOPURINOL
     Dosage: 0000
     Dates: start: 20170616
  13. BASAGLAR [Concomitant]
     Active Substance: INSULIN GLARGINE
     Dosage: 0000
     Dates: start: 20170616
  14. NOVOLOG [Concomitant]
     Active Substance: INSULIN ASPART
     Dosage: 0000
     Dates: start: 20170616
  15. GABAPENTIN [Concomitant]
     Active Substance: GABAPENTIN
     Dosage: 0000
     Dates: start: 20171223
  16. ALBUTEROL\IPRATROPIUM [Concomitant]
     Active Substance: ALBUTEROL\IPRATROPIUM
     Dosage: 0000
     Dates: start: 20170908
  17. LOSARTAN POTASSIUM [Concomitant]
     Active Substance: LOSARTAN POTASSIUM
     Dosage: 0000
     Dates: start: 20180228
  18. METOPROLOL SUCCINATE [Concomitant]
     Active Substance: METOPROLOL SUCCINATE
     Dosage: 0000
     Dates: start: 20171223
  19. METOPROLOL SUCCINATE [Concomitant]
     Active Substance: METOPROLOL SUCCINATE
     Dosage: 0000
     Dates: start: 20151207
  20. PATANASE [Concomitant]
     Active Substance: OLOPATADINE HYDROCHLORIDE
     Dosage: 0000
     Dates: start: 20180228
  21. VENTOLIN HFA [Concomitant]
     Active Substance: ALBUTEROL SULFATE
     Dosage: 0000
     Dates: start: 20171204
  22. POLYETHYLENE GLYCOL 3350 [Concomitant]
     Active Substance: POLYETHYLENE GLYCOL 3350
     Dosage: 0000
     Dates: start: 20181211
  23. XARELTO [Concomitant]
     Active Substance: RIVAROXABAN
     Dosage: 0000
     Dates: start: 20200508
  24. FENOFIBRATE [Concomitant]
     Active Substance: FENOFIBRATE
     Dosage: 0000
     Dates: start: 20191121
  25. LEVOTHYROXINE [Concomitant]
     Active Substance: LEVOTHYROXINE
     Dosage: 0000
     Dates: start: 20200206
  26. OMEGA 3 FISH OIL [FISH OIL] [Concomitant]
     Dosage: 0000
     Dates: start: 20191121
  27. DULOXETINE HYDROCHLORIDE [Concomitant]
     Active Substance: DULOXETINE HYDROCHLORIDE
     Dosage: 0000
     Dates: start: 20210317
  28. DIGOX [DIGOXIN] [Concomitant]
     Dosage: 0000
     Dates: start: 20210204
  29. SYMBICORT [Concomitant]
     Active Substance: BUDESONIDE\FORMOTEROL FUMARATE DIHYDRATE
     Dosage: 0000
     Dates: start: 20190101
  30. BEETROOT [Concomitant]
     Dosage: 0000
     Dates: start: 20210101
  31. GINGER ROOT [ZINGIBER OFFICINALE RHIZOME] [Concomitant]
     Dosage: 0000
     Dates: start: 20210101
  32. MUSHROOM COMPLEX [GANODERMA LUCIDUM;GRIFOLA FRONDOSA;LENTINUS EDODES] [Concomitant]
     Dosage: 0000
     Dates: start: 20210101
  33. DILAUDID [Concomitant]
     Active Substance: HYDROMORPHONE HYDROCHLORIDE
     Dosage: 0000
     Dates: start: 20211222

REACTIONS (6)
  - Toe amputation [Unknown]
  - Neuropathy peripheral [Not Recovered/Not Resolved]
  - Limb injury [Unknown]
  - Localised infection [Unknown]
  - Foot fracture [Recovered/Resolved]
  - Tremor [Not Recovered/Not Resolved]
